FAERS Safety Report 6235049-X (Version None)
Quarter: 2009Q2

REPORT INFORMATION
  Report Type: 
  Country: None (occurrence: None)
  Receive Date: 20090618
  Receipt Date: 20090616
  Transmission Date: 20091009
  Serious: Yes (Hospitalization)
  Sender: FDA-Public Use
  Company Number: FR-EISAI INC.-E2090-00764-SPO-FR

PATIENT
  Age: 63 Year
  Sex: Male

DRUGS (3)
  1. ZONEGRAN [Suspect]
     Indication: EPILEPSY
     Route: 048
     Dates: start: 20090201, end: 20090609
  2. KEPPRA [Concomitant]
     Indication: EPILEPSY
     Route: 048
  3. TARKA [Concomitant]
     Route: 048

REACTIONS (1)
  - ERYTHEMA MULTIFORME [None]
